FAERS Safety Report 9932078 (Version 1)
Quarter: 2014Q1

REPORT INFORMATION
  Report Type: Report from Study
  Country: US (occurrence: US)
  Receive Date: 20140228
  Receipt Date: 20140228
  Transmission Date: 20141002
  Serious: No
  Sender: FDA-Public Use
  Company Number: US-ABBVIE-13P-163-1131564-00

PATIENT
  Age: 56 Year
  Sex: Male
  Weight: 149.82 kg

DRUGS (2)
  1. ANDROGEL [Suspect]
     Indication: BLOOD TESTOSTERONE DECREASED
     Dosage: 2 PUMPS DAILY
     Dates: start: 2013, end: 20130805
  2. ANDROGEL [Suspect]
     Dosage: 4 PUMPS DAILY
     Dates: start: 20130805

REACTIONS (4)
  - Skin burning sensation [Unknown]
  - Blood testosterone decreased [Unknown]
  - Drug ineffective [Unknown]
  - Hyperaesthesia [Unknown]
